FAERS Safety Report 7795355-4 (Version None)
Quarter: 2011Q4

REPORT INFORMATION
  Report Type: 
  Country: None (occurrence: None)
  Receive Date: 20111004
  Receipt Date: 20110922
  Transmission Date: 20120403
  Serious: Yes (Hospitalization, Other)
  Sender: FDA-Public Use
  Company Number: CA-JNJFOC-20101105950

PATIENT
  Sex: Female
  Weight: 71 kg

DRUGS (10)
  1. DOMPERIDONE [Concomitant]
  2. AMLODIPINE [Concomitant]
  3. PULMICORT [Concomitant]
  4. REMICADE [Suspect]
     Route: 042
     Dates: start: 20110516
  5. PROZAC [Concomitant]
  6. VENTOLIN HFA [Concomitant]
  7. REMICADE [Suspect]
     Indication: CROHN'S DISEASE
     Route: 042
     Dates: start: 20101015
  8. SEREVENT [Concomitant]
  9. LABETALOL HCL [Concomitant]
     Indication: HYPERTENSION
     Dates: start: 20090101
  10. REMICADE [Suspect]
     Route: 042
     Dates: start: 20070801

REACTIONS (5)
  - GESTATIONAL HYPERTENSION [None]
  - MATERNAL EXPOSURE DURING PREGNANCY [None]
  - ARTHRALGIA [None]
  - HYPERTENSION [None]
  - INFUSION RELATED REACTION [None]
